FAERS Safety Report 7344766-X (Version None)
Quarter: 2011Q1

REPORT INFORMATION
  Report Type: 
  Country: None (occurrence: None)
  Receive Date: 20110307
  Receipt Date: 20110307
  Transmission Date: 20110831
  Serious: Yes (Other)
  Sender: FDA-Public Use
  Company Number: None

PATIENT
  Age: 12 Year
  Sex: Male
  Weight: 54.4316 kg

DRUGS (1)
  1. SINGULAIR [Suspect]
     Indication: RHINITIS ALLERGIC
     Dosage: 1 TABLET -10 MG.- ONCE A DAY PO
     Route: 048
     Dates: start: 20101208, end: 20110216

REACTIONS (6)
  - PERSONALITY CHANGE [None]
  - IRRITABILITY [None]
  - AGGRESSION [None]
  - HOSTILITY [None]
  - DEPRESSION [None]
  - MOOD ALTERED [None]
